FAERS Safety Report 17505823 (Version 1)
Quarter: 2020Q1

REPORT INFORMATION
  Report Type: Spontaneous
  Country: US (occurrence: US)
  Receive Date: 20200306
  Receipt Date: 20200306
  Transmission Date: 20200409
  Serious: No
  Sender: FDA-Public Use
  Company Number: US-BAUSCH-BL-2020-006782

PATIENT
  Age: 72 Year
  Sex: Female

DRUGS (4)
  1. ZIRGAN [Suspect]
     Active Substance: GANCICLOVIR
     Indication: INJURY CORNEAL
     Dosage: OVER 1 YEAR AGO
     Route: 047
  2. DORZOLAMIDE HCL [Concomitant]
     Active Substance: DORZOLAMIDE HYDROCHLORIDE
     Indication: PRODUCT USED FOR UNKNOWN INDICATION
     Route: 065
  3. TIMOLOL MALEATE. [Concomitant]
     Active Substance: TIMOLOL MALEATE
     Indication: PRODUCT USED FOR UNKNOWN INDICATION
     Dosage: OPHTHALMIC SOLUTION
     Route: 047
  4. ZIRGAN [Suspect]
     Active Substance: GANCICLOVIR
     Indication: PRODUCT USE IN UNAPPROVED INDICATION

REACTIONS (4)
  - Ocular hyperaemia [Not Recovered/Not Resolved]
  - Herpes zoster [Not Recovered/Not Resolved]
  - Product use in unapproved indication [Unknown]
  - Drug ineffective for unapproved indication [Unknown]
